FAERS Safety Report 25493783 (Version 1)
Quarter: 2025Q2

REPORT INFORMATION
  Report Type: Spontaneous
  Country: US (occurrence: US)
  Receive Date: 20250630
  Receipt Date: 20250630
  Transmission Date: 20250716
  Serious: Yes (Hospitalization)
  Sender: PADAGIS
  Company Number: US-PADAGIS-2025PAD00761

PATIENT

DRUGS (1)
  1. ALBUTEROL SULFATE [Suspect]
     Active Substance: ALBUTEROL SULFATE
     Indication: Bronchial hyperreactivity
     Route: 065

REACTIONS (2)
  - Condition aggravated [Unknown]
  - Therapy partial responder [Unknown]
